FAERS Safety Report 17314349 (Version 1)
Quarter: 2020Q1

REPORT INFORMATION
  Report Type: Spontaneous
  Country: US (occurrence: US)
  Receive Date: 20200123
  Receipt Date: 20200123
  Transmission Date: 20200409
  Serious: Yes (Hospitalization)
  Sender: FDA-Public Use
  Company Number: None

PATIENT
  Sex: Male
  Weight: 70.31 kg

DRUGS (5)
  1. BICALUTAMIDE 50MG [Concomitant]
     Active Substance: BICALUTAMIDE
  2. ASPIRIN 81MG [Concomitant]
     Active Substance: ASPIRIN
  3. VITAMIN D 1000 UNITS [Concomitant]
  4. LATANOPROST 0.005% [Concomitant]
     Active Substance: LATANOPROST
  5. ABIRATERONE ACETATE. [Suspect]
     Active Substance: ABIRATERONE ACETATE
     Indication: PROSTATE CANCER
     Route: 048
     Dates: start: 20181207, end: 20200123

REACTIONS (1)
  - Hospitalisation [None]
